FAERS Safety Report 5379659-0 (Version None)
Quarter: 2007Q3

REPORT INFORMATION
  Report Type: 
  Country: None (occurrence: None)
  Receive Date: 20070706
  Receipt Date: 20070625
  Transmission Date: 20080115
  Serious: Yes (Hospitalization)
  Sender: FDA-Public Use
  Company Number: PHBS2007BE09975

PATIENT
  Age: 41 Year
  Sex: Female

DRUGS (7)
  1. GLEEVEC [Suspect]
     Indication: ACUTE LYMPHOCYTIC LEUKAEMIA
     Dosage: 600 MG/D
     Route: 048
     Dates: start: 20070501, end: 20070529
  2. GLEEVEC [Suspect]
     Dosage: 400 MG/D
     Route: 048
     Dates: start: 20070530, end: 20070613
  3. GLEEVEC [Suspect]
     Dosage: UNK, UNK
     Route: 048
     Dates: start: 20070622
  4. GLEEVEC [Suspect]
     Dosage: 400 MG/D
     Route: 048
     Dates: start: 20070501, end: 20070501
  5. CHEMOTHERAPEUTICS,OTHER [Concomitant]
     Route: 065
  6. LITICAN [Concomitant]
     Dosage: UNK, UNK
     Route: 065
     Dates: end: 20070612
  7. KYTRIL [Concomitant]
     Route: 065
     Dates: end: 20070612

REACTIONS (4)
  - BLOOD PROLACTIN INCREASED [None]
  - BREAST PAIN [None]
  - GALACTORRHOEA [None]
  - PYREXIA [None]
